FAERS Safety Report 5371556-X (Version None)
Quarter: 2007Q2

REPORT INFORMATION
  Report Type: 
  Country: None (occurrence: None)
  Receive Date: 20070625
  Receipt Date: 20070625
  Transmission Date: 20071010
  Serious: Yes (Hospitalization)
  Sender: FDA-Public Use
  Company Number: None

PATIENT
  Age: 50 Year
  Sex: Male

DRUGS (2)
  1. INSULIN [Suspect]
     Indication: DIABETES MELLITUS
     Dosage: 35UNITS AM SQ
     Route: 058
     Dates: start: 20070530
  2. INSULIN [Suspect]
     Dosage: 18UNITS PM SQ
     Route: 058

REACTIONS (1)
  - HYPOGLYCAEMIA [None]
